FAERS Safety Report 9025136 (Version 1)
Quarter: 2013Q1

REPORT INFORMATION
  Report Type: Spontaneous
  Country: PL (occurrence: PL)
  Receive Date: 20130122
  Receipt Date: 20130122
  Transmission Date: 20140127
  Serious: Yes (Hospitalization)
  Sender: FDA-Public Use
  Company Number: PL-PFIZER INC-2013021709

PATIENT
  Age: 17 Year
  Sex: Male

DRUGS (2)
  1. HALOPERIDOL [Suspect]
     Dosage: 3 MG, 3X/DAY
  2. VALPROIC ACID [Suspect]
     Dosage: 500 MG, 2X/DAY

REACTIONS (2)
  - Drug effect incomplete [Unknown]
  - Hallucination, visual [Recovering/Resolving]
